FAERS Safety Report 20195241 (Version 1)
Quarter: 2021Q4

REPORT INFORMATION
  Report Type: Spontaneous
  Country: US (occurrence: None)
  Receive Date: 20211216
  Receipt Date: 20211216
  Transmission Date: 20220303
  Serious: Yes (Hospitalization)
  Sender: FDA-Public Use
  Company Number: None

PATIENT
  Sex: Male

DRUGS (2)
  1. ESBRIET [Suspect]
     Active Substance: PIRFENIDONE
     Indication: Idiopathic pulmonary fibrosis
     Dosage: OTHER FREQUENCY : TID W/FOOD;?
     Route: 048
     Dates: start: 20200804
  2. ESBRIET [Suspect]
     Active Substance: PIRFENIDONE
     Dosage: OTHER FREQUENCY : TID W/FOOD;?
     Route: 048

REACTIONS (4)
  - Chest pain [None]
  - Decreased appetite [None]
  - Ageusia [None]
  - Therapy interrupted [None]
